FAERS Safety Report 7674907-6 (Version None)
Quarter: 2011Q3

REPORT INFORMATION
  Report Type: 
  Country: None (occurrence: None)
  Receive Date: 20110810
  Receipt Date: 20110728
  Transmission Date: 20111222
  Serious: Yes (Hospitalization)
  Sender: FDA-Public Use
  Company Number: US-ELI_LILLY_AND_COMPANY-US201108000585

PATIENT
  Sex: Male

DRUGS (12)
  1. CLONAZEPAM [Concomitant]
  2. LAMICTAL [Concomitant]
  3. WELLBUTRIN [Concomitant]
  4. COUMADIN [Concomitant]
     Dosage: UNK
  5. CYMBALTA [Suspect]
     Indication: BIPOLAR II DISORDER
     Dosage: 30 MG, QD
  6. LORATADINE [Concomitant]
     Indication: PULMONARY CONGESTION
     Dosage: UNK
  7. MELATONIN [Concomitant]
  8. EFFEXOR [Concomitant]
  9. MELOXICAM [Concomitant]
  10. ACETAMINOPHEN [Concomitant]
  11. ZOPIDEM [Concomitant]
  12. CYMBALTA [Suspect]
     Dosage: 60 MG, BID

REACTIONS (7)
  - MEMORY IMPAIRMENT [None]
  - PAIN [None]
  - PSYCHOTIC DISORDER [None]
  - INFLUENZA [None]
  - THROMBOSIS [None]
  - MALAISE [None]
  - OFF LABEL USE [None]
